FAERS Safety Report 5158233-5 (Version None)
Quarter: 2006Q4

REPORT INFORMATION
  Report Type: 
  Country: None (occurrence: None)
  Receive Date: 20061121
  Receipt Date: 20061121
  Transmission Date: 20070319
  Serious: Yes (Death, Life-Threatening, Hospitalization)
  Sender: FDA-Public Use
  Company Number: None

PATIENT
  Age: 58 Year
  Sex: Female
  Weight: 64.5 kg

DRUGS (5)
  1. PENTOSTATIN [Suspect]
     Dosage: 7.2MG
     Dates: start: 20060921, end: 20061110
  2. MEROPENEM [Concomitant]
  3. MYCOPHENOLATE MOFETI [Concomitant]
  4. LINEZOLID [Concomitant]
  5. METRONIDAZOLE [Concomitant]

REACTIONS (2)
  - GENERAL PHYSICAL HEALTH DETERIORATION [None]
  - THERAPY NON-RESPONDER [None]
